FAERS Safety Report 5594726-4 (Version None)
Quarter: 2007Q4

REPORT INFORMATION
  Report Type: 
  Country: None (occurrence: None)
  Receive Date: 20071218
  Receipt Date: 20070404
  Transmission Date: 20080405
  Serious: Yes (Hospitalization)
  Sender: FDA-Public Use
  Company Number: 2007027842

PATIENT

DRUGS (1)
  1. BEXTRA [Suspect]
     Dates: start: 20020518, end: 20041001

REACTIONS (1)
  - MYOCARDIAL INFARCTION [None]
